FAERS Safety Report 6322526-6 (Version None)
Quarter: 2009Q3

REPORT INFORMATION
  Report Type: 
  Country: None (occurrence: None)
  Receive Date: 20090824
  Receipt Date: 20080901
  Transmission Date: 20100115
  Serious: Yes (Death, Hospitalization, Other)
  Sender: FDA-Public Use
  Company Number: TW-PFIZER INC-2008070739

PATIENT

DRUGS (1)
  1. LIPITOR [Suspect]
     Indication: HYPERLIPIDAEMIA
     Dosage: 20 MG, 1X/DAY
     Route: 048
     Dates: start: 20080401

REACTIONS (8)
  - ACUTE RESPIRATORY FAILURE [None]
  - GASTRIC ULCER [None]
  - HYPERURICAEMIA [None]
  - HYPOALBUMINAEMIA [None]
  - METABOLIC ACIDOSIS [None]
  - RENAL DISORDER [None]
  - RHABDOMYOLYSIS [None]
  - SEPTIC SHOCK [None]
